FAERS Safety Report 10455169 (Version 3)
Quarter: 2014Q4

REPORT INFORMATION
  Report Type: Spontaneous
  Country: US (occurrence: US)
  Receive Date: 20140916
  Receipt Date: 20141009
  Transmission Date: 20150528
  Serious: Yes (Other)
  Sender: FDA-Public Use
  Company Number: US-RB-068554-14

PATIENT
  Age: 66 Year
  Sex: Male
  Weight: 85 kg

DRUGS (7)
  1. RANEXA 1000MG ORAL TABLET, EXTENDED RELEASE [Concomitant]
     Indication: CARDIAC DISORDER
     Dosage: 1 TAB(S) ORALLY 2 TIMES A DAY
     Route: 048
  2. METHROPOLOL [Concomitant]
     Indication: PRODUCT USED FOR UNKNOWN INDICATION
     Dosage: UNKNOWN
     Route: 065
  3. TRAZODONE 50MG ORAL TABLET [Concomitant]
     Indication: PRODUCT USED FOR UNKNOWN INDICATION
     Dosage: 50 MIIIIGRAM(S) ORALLY ONCE A DAY (AT BEDTIME)
     Route: 048
  4. AMLODIPINE [Concomitant]
     Active Substance: AMLODIPINE BESYLATE
     Indication: HYPERTENSION
     Route: 065
  5. MUCINEX D MAXIMUM STRENGTH [Suspect]
     Active Substance: GUAIFENESIN\PSEUDOEPHEDRINE HYDROCHLORIDE
     Indication: RESPIRATORY TRACT CONGESTION
     Dosage: TOOK ONLY 1 TABLET (ON 31-AUG-2014)
     Route: 065
     Dates: start: 20140831
  6. CRESTOR [Concomitant]
     Active Substance: ROSUVASTATIN CALCIUM
     Indication: BLOOD CHOLESTEROL
     Dosage: 2.5 MILLIGRAM(S) ORALLY ONCE A DAY
     Route: 048
  7. CYMBALTA 60 MG ORAL DELAYED RELEASE CAPSULE [Concomitant]
     Indication: FIBROMYALGIA
     Dosage: 1 CAP(S) ORALLY ONCE A DAY
     Route: 048

REACTIONS (15)
  - Bronchitis [Recovered/Resolved]
  - Hypoaesthesia [Recovered/Resolved]
  - Dyspnoea [Recovered/Resolved]
  - Cardiac disorder [Recovered/Resolved]
  - Abasia [Recovered/Resolved]
  - Dizziness [Recovered/Resolved]
  - Malaise [Recovered/Resolved]
  - Paraesthesia [Recovered/Resolved]
  - Vomiting [Recovered/Resolved]
  - Chest discomfort [Recovered/Resolved]
  - Hypersensitivity [Recovered/Resolved]
  - Respiratory disorder [Recovered/Resolved]
  - Nonspecific reaction [Recovered/Resolved]
  - Pain [Recovered/Resolved]
  - Chest pain [Recovered/Resolved]

NARRATIVE: CASE EVENT DATE: 20140831
